FAERS Safety Report 25589467 (Version 1)
Quarter: 2025Q3

REPORT INFORMATION
  Report Type: Report from Study
  Country: US (occurrence: US)
  Receive Date: 20250722
  Receipt Date: 20250722
  Transmission Date: 20251021
  Serious: Yes (Hospitalization, Other)
  Sender: USPHARMA
  Company Number: US-USP-004942

PATIENT
  Age: 31 Year
  Sex: Male

DRUGS (1)
  1. NITROGLYCERIN [Suspect]
     Active Substance: NITROGLYCERIN
     Indication: Promotion of wound healing
     Route: 065

REACTIONS (4)
  - Wound dehiscence [Recovered/Resolved]
  - Product use in unapproved indication [Unknown]
  - Staphylococcal infection [Recovering/Resolving]
  - Corynebacterium infection [Recovering/Resolving]
